FAERS Safety Report 18939822 (Version 3)
Quarter: 2024Q1

REPORT INFORMATION
  Report Type: Spontaneous
  Country: US (occurrence: US)
  Receive Date: 20210224
  Receipt Date: 20240311
  Transmission Date: 20240409
  Serious: No
  Sender: FDA-Public Use
  Company Number: US-PFIZER INC-2021177456

PATIENT
  Age: 70 Year
  Sex: Female
  Weight: 84.807 kg

DRUGS (2)
  1. IBRANCE [Suspect]
     Active Substance: PALBOCICLIB
     Indication: Breast cancer metastatic
     Dosage: ONCE A DAY FOR 21 DAYS THAN 7 DAYS OFF, 100 MG, ORALLY
     Route: 048
     Dates: start: 201911
  2. METOPROLOL [Concomitant]
     Active Substance: METOPROLOL
     Indication: Hypertension
     Dosage: 25 MG, ONCE A DAY

REACTIONS (3)
  - Neoplasm progression [Unknown]
  - Dyspepsia [Unknown]
  - Diarrhoea [Unknown]
